FAERS Safety Report 14163078 (Version 2)
Quarter: 2018Q1

REPORT INFORMATION
  Report Type: Report from Study
  Country: None (occurrence: US)
  Receive Date: 20171106
  Receipt Date: 20180111
  Transmission Date: 20180508
  Serious: No
  Sender: FDA-Public Use
  Company Number: US-VIFOR (INTERNATIONAL) INC.-VIT-2017-12057

PATIENT
  Age: 87 Year
  Sex: Male
  Weight: 67.19 kg

DRUGS (19)
  1. COLECALCIFEROL [Concomitant]
     Active Substance: CHOLECALCIFEROL
  2. ISOSORB MONOTAB [Concomitant]
  3. AGGRENOX [Concomitant]
     Active Substance: ASPIRIN\DIPYRIDAMOLE
  4. FERROUS SULFATE. [Concomitant]
     Active Substance: FERROUS SULFATE
  5. LEVEMIR INJ [Concomitant]
  6. TRIAMT/HCTZ [Concomitant]
     Active Substance: HYDROCHLOROTHIAZIDE\TRIAMTERENE
  7. VELTASSA [Suspect]
     Active Substance: PATIROMER
     Indication: HYPERKALAEMIA
     Route: 048
     Dates: start: 20161206
  8. PROAIR HFA [Concomitant]
     Active Substance: ALBUTEROL SULFATE
  9. GUAIFENESIN. [Concomitant]
     Active Substance: GUAIFENESIN
  10. HYDRALAZINE [Concomitant]
     Active Substance: HYDRALAZINE HYDROCHLORIDE
  11. CETIRIZINE [Concomitant]
     Active Substance: CETIRIZINE HYDROCHLORIDE
  12. FOLIC ACID. [Concomitant]
     Active Substance: FOLIC ACID
  13. CYANOCOBALAMIN. [Concomitant]
     Active Substance: CYANOCOBALAMIN
  14. ERGOCALCIFEROL~~RETINOL~~CALCIUM CARBONATE [Concomitant]
  15. FINASTERIDE. [Concomitant]
     Active Substance: FINASTERIDE
  16. ATORVASTATIN [Concomitant]
     Active Substance: ATORVASTATIN
  17. FAMOTIDINE. [Concomitant]
     Active Substance: FAMOTIDINE
  18. SODIUM BICARBONATE. [Concomitant]
     Active Substance: SODIUM BICARBONATE
  19. GAS-X [Concomitant]
     Active Substance: DIMETHICONE

REACTIONS (2)
  - No adverse event [Recovered/Resolved]
  - Drug dose omission [Recovered/Resolved]

NARRATIVE: CASE EVENT DATE: 20171022
